FAERS Safety Report 8226273-5 (Version None)
Quarter: 2012Q1

REPORT INFORMATION
  Report Type: 
  Country: None (occurrence: None)
  Receive Date: 20120321
  Receipt Date: 20120314
  Transmission Date: 20120608
  Serious: Yes (Death, Other)
  Sender: FDA-Public Use
  Company Number: PHHY2012JP019511

PATIENT
  Age: 55 Year
  Sex: Male

DRUGS (3)
  1. CYCLOSPORINE [Suspect]
     Indication: CORD BLOOD TRANSPLANT THERAPY
  2. RITUXIMAB [Concomitant]
  3. CORTICOSTEROIDS [Concomitant]

REACTIONS (13)
  - SMALL INTESTINE ULCER [None]
  - INTESTINAL STENOSIS [None]
  - CIRCULATORY COLLAPSE [None]
  - FAECES DISCOLOURED [None]
  - BONE MARROW FAILURE [None]
  - DIFFUSE LARGE B-CELL LYMPHOMA [None]
  - RESPIRATORY FAILURE [None]
  - LYMPHADENOPATHY [None]
  - ABDOMINAL PAIN [None]
  - PNEUMONIA ASPIRATION [None]
  - POST TRANSPLANT LYMPHOPROLIFERATIVE DISORDER [None]
  - DUODENAL ULCER [None]
  - EPSTEIN-BARR VIRUS INFECTION [None]
